FAERS Safety Report 7926867-8 (Version None)
Quarter: 2011Q4

REPORT INFORMATION
  Report Type: 
  Country: None (occurrence: None)
  Receive Date: 20111118
  Receipt Date: 20111111
  Transmission Date: 20120403
  Serious: Yes (Other)
  Sender: FDA-Public Use
  Company Number: JP-PFIZER INC-2011237831

PATIENT
  Age: 77 Year
  Sex: Male

DRUGS (4)
  1. ESTRACYT [Suspect]
     Indication: PROSTATE CANCER
     Dosage: 626.8 MG/DAY
     Route: 048
     Dates: start: 20110817, end: 20110901
  2. ZOLADEX [Concomitant]
     Indication: PROSTATE CANCER
     Dosage: 10.8 MG, UNK
     Route: 058
     Dates: start: 20110817
  3. ESTRACYT [Suspect]
     Indication: METASTASES TO BONE
  4. ZOLADEX [Concomitant]
     Indication: METASTASES TO BONE

REACTIONS (1)
  - HEPATIC FUNCTION ABNORMAL [None]
